FAERS Safety Report 9613930 (Version 1)
Quarter: 2013Q4

REPORT INFORMATION
  Report Type: Report from Study
  Country: ES (occurrence: ES)
  Receive Date: 20131011
  Receipt Date: 20131011
  Transmission Date: 20140711
  Serious: Yes (Other)
  Sender: FDA-Public Use
  Company Number: ES-PFIZER INC-2013286312

PATIENT
  Age: 66 Year
  Sex: Male

DRUGS (3)
  1. CYTARABINE [Suspect]
     Indication: ACUTE MONOCYTIC LEUKAEMIA
     Dosage: UNK
     Dates: start: 200911
  2. IDARUBICIN HCL [Suspect]
     Indication: ACUTE MONOCYTIC LEUKAEMIA
     Dosage: UNK
     Dates: start: 200911
  3. ETOPOSIDE [Suspect]
     Indication: ACUTE MONOCYTIC LEUKAEMIA
     Dosage: UNK
     Dates: start: 200911

REACTIONS (4)
  - Disseminated intravascular coagulation [Unknown]
  - Candida infection [Unknown]
  - Neutropenia [Not Recovered/Not Resolved]
  - Bacteraemia [Unknown]
